FAERS Safety Report 23265799 (Version 1)
Quarter: 2023Q4

REPORT INFORMATION
  Report Type: Other
  Country: CN (occurrence: None)
  Receive Date: 20231206
  Receipt Date: 20231206
  Transmission Date: 20240110
  Serious: Yes (Other)
  Sender: FDA-Public Use
  Company Number: CN-ROCHE-3466321

PATIENT
  Age: 66 Year
  Sex: Female

DRUGS (4)
  1. BEVACIZUMAB [Suspect]
     Active Substance: BEVACIZUMAB
     Indication: Peritoneal mesothelioma malignant
     Dosage: ON DAY 1+
     Route: 042
     Dates: start: 20211202
  2. PACLITAXEL [Suspect]
     Active Substance: PACLITAXEL
     Indication: Peritoneal mesothelioma malignant
     Dosage: ON DAY 1+
     Route: 042
     Dates: start: 20211202
  3. CISPLATIN [Suspect]
     Active Substance: CISPLATIN
     Indication: Peritoneal mesothelioma malignant
     Dosage: ON DAY 1.8
     Route: 033
     Dates: start: 20211202
  4. CISPLATIN [Suspect]
     Active Substance: CISPLATIN
     Dosage: DAY 1-4
     Route: 042

REACTIONS (4)
  - Leukopenia [Unknown]
  - Off label use [Unknown]
  - Neurotoxicity [Unknown]
  - Gastrointestinal disorder [Unknown]
